FAERS Safety Report 10066381 (Version 1)
Quarter: 2014Q2

REPORT INFORMATION
  Report Type: Spontaneous
  Country: US (occurrence: US)
  Receive Date: 20140408
  Receipt Date: 20140408
  Transmission Date: 20141212
  Serious: No
  Sender: FDA-Public Use
  Company Number: US-009507513-1404USA003441

PATIENT
  Age: 59 Year
  Sex: Female

DRUGS (1)
  1. NASONEX [Suspect]
     Indication: SINUS DISORDER
     Dosage: 2 SPRAYS IN EACH NOSTRIL, ONCE DAILY
     Route: 045
     Dates: start: 20120403

REACTIONS (4)
  - Insomnia [Not Recovered/Not Resolved]
  - Nasal congestion [Not Recovered/Not Resolved]
  - Drug dose omission [Unknown]
  - Product quality issue [Unknown]
